FAERS Safety Report 7994917-9 (Version None)
Quarter: 2011Q4

REPORT INFORMATION
  Report Type: 
  Country: None (occurrence: None)
  Receive Date: 20111220
  Receipt Date: 20111216
  Transmission Date: 20120403
  Serious: No
  Sender: FDA-Public Use
  Company Number: US-TEVA-314181USA

PATIENT
  Age: 27 Year
  Sex: Female
  Weight: 54.48 kg

DRUGS (2)
  1. ELLA [Suspect]
     Indication: POST COITAL CONTRACEPTION
     Route: 048
     Dates: start: 20111201, end: 20111201
  2. PLAN B ONE-STEP [Suspect]
     Indication: POST COITAL CONTRACEPTION
     Dosage: 1.5 MILLIGRAM;
     Route: 048
     Dates: start: 20111201, end: 20111201

REACTIONS (2)
  - DRUG PRESCRIBING ERROR [None]
  - MENSTRUATION IRREGULAR [None]
